FAERS Safety Report 8051167-8 (Version None)
Quarter: 2012Q1

REPORT INFORMATION
  Report Type: 
  Country: None (occurrence: None)
  Receive Date: 20120117
  Receipt Date: 20120113
  Transmission Date: 20120608
  Serious: Yes (Death)
  Sender: FDA-Public Use
  Company Number: PHHY2011AU81514

PATIENT
  Sex: Male

DRUGS (1)
  1. TASIGNA [Suspect]
     Indication: CHRONIC MYELOID LEUKAEMIA
     Dosage: 150 MG, BID
     Route: 048
     Dates: start: 20110401, end: 20110901

REACTIONS (4)
  - DYSPHAGIA [None]
  - FEEDING TUBE COMPLICATION [None]
  - THROAT CANCER [None]
  - PNEUMONIA ASPIRATION [None]
